FAERS Safety Report 8180621-3 (Version None)
Quarter: 2012Q1

REPORT INFORMATION
  Report Type: 
  Country: None (occurrence: None)
  Receive Date: 20120302
  Receipt Date: 20120216
  Transmission Date: 20120608
  Serious: Yes (Other)
  Sender: FDA-Public Use
  Company Number: US-WATSON-2012-02774

PATIENT
  Sex: Female

DRUGS (2)
  1. FOSAMAX [Suspect]
     Indication: OSTEOPOROSIS
     Dosage: ^AS PRESCRIBED AND IN A FORESEEABLE MANNER^
     Route: 065
  2. ALENDRONATE SODIUM [Suspect]
     Indication: OSTEOPOROSIS
     Dosage: ^AS PRESCRIBED AND IN A FORESEEABLE MANNER^
     Route: 065

REACTIONS (4)
  - BONE DISORDER [None]
  - STRESS FRACTURE [None]
  - FEMUR FRACTURE [None]
  - INCORRECT DRUG ADMINISTRATION DURATION [None]
